FAERS Safety Report 13298581 (Version 5)
Quarter: 2017Q3

REPORT INFORMATION
  Report Type: Spontaneous
  Country: KR (occurrence: KR)
  Receive Date: 20170306
  Receipt Date: 20170802
  Transmission Date: 20171127
  Serious: Yes (Other)
  Sender: FDA-Public Use
  Company Number: KR-009507513-1703KOR000861

PATIENT
  Age: 54 Year
  Sex: Male
  Weight: 67.5 kg

DRUGS (39)
  1. ALPRAM [Concomitant]
     Active Substance: ALPRAZOLAM
     Indication: CEREBELLAR ATROPHY
     Dosage: 0.5 TABLET, BID
     Route: 048
     Dates: start: 20150327
  2. HEXAMEDINE [Concomitant]
     Indication: DENTAL DISORDER PROPHYLAXIS
     Dosage: 25 ML, QID
     Route: 050
     Dates: start: 20161218, end: 20161224
  3. MANNITOL. [Concomitant]
     Active Substance: MANNITOL
     Indication: DRUG TOXICITY PROPHYLAXIS
     Dosage: 90 ML, ONCE; STRENGTH ALSO REPORTED AS^100 ML^
     Route: 042
     Dates: start: 20161219, end: 20161219
  4. FLUOROURACIL. [Concomitant]
     Active Substance: FLUOROURACIL
     Indication: CHEMOTHERAPY
     Dosage: 1730 MG, QD (CYCLE 1)
     Route: 042
     Dates: start: 20161219, end: 20161222
  5. FLUOROURACIL. [Concomitant]
     Active Substance: FLUOROURACIL
     Dosage: 1500 MG, QD (CYCLE 3)
     Route: 042
     Dates: start: 20170207, end: 20170210
  6. ALOXI [Concomitant]
     Active Substance: PALONOSETRON HYDROCHLORIDE
     Indication: PROPHYLAXIS OF NAUSEA AND VOMITING
     Dosage: 0.25 MG, ONCE
     Route: 042
     Dates: start: 20161219, end: 20161219
  7. ASPIRIN PROTECT [Concomitant]
     Active Substance: ASPIRIN
     Indication: CEREBRAL INFARCTION
     Dosage: 100 MG (1 TABLET), QD
     Route: 048
     Dates: start: 20150417
  8. HEXAMEDINE [Concomitant]
     Dosage: 25 ML, QID
     Route: 050
     Dates: start: 20170116, end: 20170120
  9. HEXAMEDINE [Concomitant]
     Dosage: 25 ML, QID
     Route: 050
     Dates: start: 20170205, end: 20170211
  10. TANTUM [Concomitant]
     Active Substance: BENZYDAMINE HYDROCHLORIDE
     Indication: DENTAL DISORDER PROPHYLAXIS
     Dosage: 25 ML, QID
     Route: 050
     Dates: start: 20161218, end: 20161224
  11. MACPERAN [Concomitant]
     Active Substance: METOCLOPRAMIDE HYDROCHLORIDE
     Indication: PROPHYLAXIS OF NAUSEA AND VOMITING
     Dosage: 10 MG, TID
     Route: 042
     Dates: start: 20161219, end: 20161222
  12. TYLENOL EXTENDED RELIEF CAPLETS [Concomitant]
     Active Substance: ACETAMINOPHEN
     Indication: HEADACHE
     Dosage: 650 MG (1 TABLET), TID
     Route: 048
     Dates: start: 20161222, end: 20170120
  13. FLUOROURACIL. [Concomitant]
     Active Substance: FLUOROURACIL
     Dosage: 1500 MG, QD (CYCLE 2)
     Route: 042
     Dates: start: 20170116, end: 20170119
  14. DEXAMETHASONE SODIUM PHOSPHATE. [Concomitant]
     Active Substance: DEXAMETHASONE SODIUM PHOSPHATE
     Dosage: 8 MG, ONCE
     Route: 042
     Dates: start: 20170207, end: 20170207
  15. MIRAPEX [Concomitant]
     Active Substance: PRAMIPEXOLE DIHYDROCHLORIDE
     Indication: CEREBELLAR ATROPHY
     Dosage: 0.5 TABLET, BID
     Route: 048
     Dates: start: 20161214
  16. TANTUM [Concomitant]
     Active Substance: BENZYDAMINE HYDROCHLORIDE
     Dosage: 25 ML, QID
     Route: 050
     Dates: start: 20170116, end: 20170120
  17. EMEND (FOSAPREPITANT DIMEGLUMINE) [Suspect]
     Active Substance: FOSAPREPITANT DIMEGLUMINE
     Dosage: 150 MG, ONCE
     Route: 042
     Dates: start: 20170116, end: 20170116
  18. ESOMEZOL (ESOMEPRAZOLE STRONTIUM) [Concomitant]
     Active Substance: ESOMEPRAZOLE STRONTIUM
     Indication: PROPHYLAXIS
     Dosage: 20 MG (1 CAPSULE), QD
     Route: 048
     Dates: start: 20150401
  19. VITAMEDIN CAPSULES [Concomitant]
     Indication: PARAESTHESIA
     Dosage: 50 MG (1 CAPSULE), BID
     Route: 048
     Dates: start: 20160629
  20. ACTINAMIDE [Concomitant]
     Indication: CEREBELLAR ATAXIA
     Dosage: 1 MG, ONCE
     Route: 030
     Dates: start: 20161214, end: 20161214
  21. TANTUM [Concomitant]
     Active Substance: BENZYDAMINE HYDROCHLORIDE
     Dosage: 25 ML, QID
     Route: 050
     Dates: start: 20170205, end: 20170211
  22. MANNITOL. [Concomitant]
     Active Substance: MANNITOL
     Dosage: 90 ML, ONCE; STRENGTH ALSO REPORTED AS^100 ML^
     Route: 042
     Dates: start: 20170116, end: 20170116
  23. TYLENOL EXTENDED RELIEF CAPLETS [Concomitant]
     Active Substance: ACETAMINOPHEN
     Dosage: 650 MG (1 TABLET), QD
     Route: 048
     Dates: start: 20170206, end: 20170207
  24. BACLOFEN. [Concomitant]
     Active Substance: BACLOFEN
     Indication: CEREBELLAR ATROPHY
     Dosage: 10 MG (1 TABLET), BID
     Route: 048
     Dates: start: 20150527
  25. MANNITOL. [Concomitant]
     Active Substance: MANNITOL
     Dosage: 90 ML, QD; STRENGTH ALSO REPORTED AS^100 ML^
     Route: 042
     Dates: start: 20170206, end: 20170210
  26. EMEND (FOSAPREPITANT DIMEGLUMINE) [Suspect]
     Active Substance: FOSAPREPITANT DIMEGLUMINE
     Indication: PROPHYLAXIS OF NAUSEA AND VOMITING
     Dosage: 150 MG, ONCE
     Route: 042
     Dates: start: 20161219, end: 20161219
  27. CISPLAN [Concomitant]
     Active Substance: CISPLATIN
     Dosage: 80 MG, ONCE (CYCLE 2)
     Route: 042
     Dates: start: 20170116, end: 20170116
  28. DEXAMETHASONE SODIUM PHOSPHATE. [Concomitant]
     Active Substance: DEXAMETHASONE SODIUM PHOSPHATE
     Dosage: 8 MG, ONCE
     Route: 042
     Dates: start: 20170116, end: 20170116
  29. ALOXI [Concomitant]
     Active Substance: PALONOSETRON HYDROCHLORIDE
     Dosage: 0.25 MG, ONCE
     Route: 042
     Dates: start: 20170116, end: 20170116
  30. ALOXI [Concomitant]
     Active Substance: PALONOSETRON HYDROCHLORIDE
     Dosage: 0.25 MG, ONCE
     Route: 042
     Dates: start: 20170207, end: 20170207
  31. GINEXIN F [Concomitant]
     Indication: CEREBRAL INFARCTION
     Dosage: 80 MG (1 TABLET), BID
     Route: 048
     Dates: start: 20150417
  32. PRIMALAN [Concomitant]
     Active Substance: MEQUITAZINE
     Indication: RHINORRHOEA
     Dosage: 0.5 TABLET, BID
     Route: 048
     Dates: start: 20161220, end: 20161228
  33. EMEND (FOSAPREPITANT DIMEGLUMINE) [Suspect]
     Active Substance: FOSAPREPITANT DIMEGLUMINE
     Dosage: 150 MG, ONCE
     Route: 042
     Dates: start: 20170207, end: 20170207
  34. CISPLAN [Concomitant]
     Active Substance: CISPLATIN
     Indication: CHEMOTHERAPY
     Dosage: 90 MG, ONCE (CYCLE 1)
     Route: 042
     Dates: start: 20161219, end: 20161219
  35. CISPLAN [Concomitant]
     Active Substance: CISPLATIN
     Dosage: 80 MG, ONCE (CYCLE 3)
     Route: 042
     Dates: start: 20170207, end: 20170207
  36. DEXAMETHASONE SODIUM PHOSPHATE. [Concomitant]
     Active Substance: DEXAMETHASONE SODIUM PHOSPHATE
     Indication: PROPHYLAXIS OF NAUSEA AND VOMITING
     Dosage: 8 MG, ONCE
     Route: 042
     Dates: start: 20161219, end: 20161219
  37. ALPRAM [Concomitant]
     Active Substance: ALPRAZOLAM
     Dosage: 1 TABLET, QD
     Route: 048
     Dates: start: 20150327
  38. ATIVAN [Concomitant]
     Active Substance: LORAZEPAM
     Indication: ANXIETY
     Dosage: 0.5 MG (1 TABLET), QD
     Route: 048
     Dates: start: 20160127
  39. MOTILITONE [Concomitant]
     Active Substance: HERBALS
     Indication: PROPHYLAXIS
     Dosage: 1 TABLET, QD
     Route: 048
     Dates: start: 20161214

REACTIONS (3)
  - Fluid imbalance [Recovered/Resolved]
  - Blood pressure increased [Recovered/Resolved]
  - Neutropenia [Recovered/Resolved]

NARRATIVE: CASE EVENT DATE: 20170105
